FAERS Safety Report 5109642-1 (Version None)
Quarter: 2006Q3

REPORT INFORMATION
  Report Type: 
  Country: None (occurrence: None)
  Receive Date: 20060918
  Receipt Date: 20060901
  Transmission Date: 20061208
  Serious: Yes (Other)
  Sender: FDA-Public Use
  Company Number: 14741

PATIENT
  Age: 38 Year
  Sex: Female

DRUGS (4)
  1. AMIKACIN [Suspect]
     Indication: ENDOPHTHALMITIS
     Dosage: 400 MG INVIT
  2. ACETOZOLAMIDE [Concomitant]
  3. AZITHROMYCIN [Concomitant]
  4. PARACETAMOL [Concomitant]

REACTIONS (7)
  - EYE PAIN [None]
  - EYELID OEDEMA [None]
  - MACULAR ISCHAEMIA [None]
  - OCULAR HYPERTENSION [None]
  - POST PROCEDURAL COMPLICATION [None]
  - PURULENT DISCHARGE [None]
  - SCOTOMA [None]
